FAERS Safety Report 14557080 (Version 1)
Quarter: 2018Q1

REPORT INFORMATION
  Report Type: Spontaneous
  Country: PT (occurrence: PT)
  Receive Date: 20180221
  Receipt Date: 20180221
  Transmission Date: 20180509
  Serious: Yes (Other)
  Sender: FDA-Public Use
  Company Number: PT-ROCHE-2071659

PATIENT
  Sex: Female

DRUGS (2)
  1. MACITENTAN [Interacting]
     Active Substance: MACITENTAN
     Indication: PULMONARY HYPERTENSION
     Route: 065
  2. ROACTEMRA [Suspect]
     Active Substance: TOCILIZUMAB
     Indication: RHEUMATOID ARTHRITIS
     Route: 058

REACTIONS (4)
  - Pulmonary hypertension [Unknown]
  - Drug interaction [Unknown]
  - Drug ineffective [Unknown]
  - Rheumatoid arthritis [Unknown]
